FAERS Safety Report 22366226 (Version 1)
Quarter: 2023Q2

REPORT INFORMATION
  Report Type: Spontaneous
  Country: US (occurrence: US)
  Receive Date: 20230525
  Receipt Date: 20230525
  Transmission Date: 20230722
  Serious: Yes (Death, Other)
  Sender: FDA-Public Use
  Company Number: US-PFIZER INC-PV202300091561

PATIENT
  Age: 66 Year
  Sex: Male

DRUGS (4)
  1. VANCOMYCIN HYDROCHLORIDE [Suspect]
     Active Substance: VANCOMYCIN HYDROCHLORIDE
     Indication: Plasmodium falciparum infection
     Dosage: UNK
  2. CEFEPIME HYDROCHLORIDE [Suspect]
     Active Substance: CEFEPIME HYDROCHLORIDE
     Indication: Plasmodium falciparum infection
     Dosage: UNK
  3. METRONIDAZOLE [Suspect]
     Active Substance: METRONIDAZOLE
     Indication: Plasmodium falciparum infection
     Dosage: UNK
  4. ATOVAQUONE\PROGUANIL [Suspect]
     Active Substance: ATOVAQUONE\PROGUANIL
     Indication: Plasmodium falciparum infection
     Dosage: UNK

REACTIONS (2)
  - Drug ineffective [Fatal]
  - Off label use [Unknown]
